FAERS Safety Report 4920182-2 (Version None)
Quarter: 2006Q1

REPORT INFORMATION
  Report Type: 
  Country: None (occurrence: None)
  Receive Date: 20060223
  Receipt Date: 20060127
  Transmission Date: 20060701
  Serious: Yes (Life-Threatening)
  Sender: FDA-Public Use
  Company Number: 2006AP00533

PATIENT
  Age: 20775 Day
  Sex: Female
  Weight: 70.4 kg

DRUGS (3)
  1. ARIMIDEX [Suspect]
     Indication: BREAST CANCER
     Route: 048
  2. UNSPECIFIED DRUG [Concomitant]
     Indication: DIABETES MELLITUS
  3. UNEPECIFIED DRUG [Concomitant]
     Indication: NASOPHARYNGITIS

REACTIONS (1)
  - PULMONARY INFARCTION [None]
